FAERS Safety Report 17971551 (Version 4)
Quarter: 2020Q3

REPORT INFORMATION
  Report Type: Report from Study
  Country: CA (occurrence: CA)
  Receive Date: 20200702
  Receipt Date: 20200827
  Transmission Date: 20201103
  Serious: Yes (Other)
  Sender: FDA-Public Use
  Company Number: CA-SAMSUNG BIOEPIS-SB-2020-21438

PATIENT
  Age: 38 Year
  Sex: Male
  Weight: 72.9 kg

DRUGS (1)
  1. RENFLEXIS [Suspect]
     Active Substance: INFLIXIMAB-ABDA
     Indication: COLITIS ULCERATIVE
     Route: 042
     Dates: start: 20200122

REACTIONS (9)
  - Limb discomfort [Unknown]
  - Blood pressure abnormal [Not Recovered/Not Resolved]
  - Neck pain [Unknown]
  - Pain [Unknown]
  - Therapeutic response shortened [Unknown]
  - Colitis ulcerative [Not Recovered/Not Resolved]
  - Insomnia [Unknown]
  - Pain in extremity [Unknown]
  - Musculoskeletal discomfort [Unknown]

NARRATIVE: CASE EVENT DATE: 20200627
